FAERS Safety Report 4416151-1 (Version None)
Quarter: 2004Q3

REPORT INFORMATION
  Report Type: 
  Country: None (occurrence: None)
  Receive Date: 20040730
  Receipt Date: 20040720
  Transmission Date: 20050211
  Serious: Yes (Hospitalization)
  Sender: FDA-Public Use
  Company Number: 163-20785-04070143

PATIENT
  Age: 52 Year
  Sex: Male

DRUGS (2)
  1. THALOMID [Suspect]
     Indication: MYELOFIBROSIS
     Dosage: 100 MG, QD, ORAL
     Route: 048
     Dates: start: 20040401, end: 20040504
  2. LACTULOSE [Concomitant]

REACTIONS (3)
  - BACTERIAL INFECTION [None]
  - ENCEPHALOPATHY [None]
  - HEPATIC FAILURE [None]
